FAERS Safety Report 5788177-7 (Version None)
Quarter: 2008Q2

REPORT INFORMATION
  Report Type: 
  Country: None (occurrence: None)
  Receive Date: 20080623
  Receipt Date: 20080605
  Transmission Date: 20081010
  Serious: Yes (Hospitalization, Disabling)
  Sender: FDA-Public Use
  Company Number: 002#1#2008-00480

PATIENT
  Age: 84 Year
  Sex: Male
  Weight: 69.4003 kg

DRUGS (11)
  1. NEUPRO [Suspect]
     Indication: PARKINSON'S DISEASE
     Dosage: 2MG/24H, 1 IN 1 D, TRANSDERMAL
     Route: 062
     Dates: end: 20080503
  2. CARBIDOPA AND LEVODOPA [Concomitant]
  3. GLYBURIDE [Concomitant]
  4. ACTIS [Concomitant]
  5. JANUVIA [Concomitant]
  6. AVODART [Concomitant]
  7. CYMBALTA [Concomitant]
  8. ASPIRIN [Concomitant]
  9. SENOKOT [Concomitant]
  10. SIMVASTATIN [Concomitant]
  11. LIDODERM [Concomitant]

REACTIONS (4)
  - ABASIA [None]
  - DYSPHAGIA [None]
  - FALL [None]
  - IMPAIRED SELF-CARE [None]
